FAERS Safety Report 11635081 (Version 2)
Quarter: 2015Q4

REPORT INFORMATION
  Report Type: Spontaneous
  Country: US (occurrence: US)
  Receive Date: 20151015
  Receipt Date: 20151130
  Transmission Date: 20160304
  Serious: Yes (Other)
  Sender: FDA-Public Use
  Company Number: US-AMGEN-USASP2015105989

PATIENT
  Age: 70 Year
  Sex: Male

DRUGS (1)
  1. XGEVA [Suspect]
     Active Substance: DENOSUMAB
     Indication: PRODUCT USED FOR UNKNOWN INDICATION
     Dosage: UNK
     Route: 065
     Dates: start: 2010, end: 201508

REACTIONS (10)
  - Oral candidiasis [Unknown]
  - Osteonecrosis of jaw [Unknown]
  - Headache [Unknown]
  - Ear pain [Unknown]
  - Pain in jaw [Not Recovered/Not Resolved]
  - Mastication disorder [Unknown]
  - Sensitivity of teeth [Unknown]
  - Toothache [Unknown]
  - Gingivitis [Unknown]
  - Mouth swelling [Recovered/Resolved]

NARRATIVE: CASE EVENT DATE: 2015
